FAERS Safety Report 18074601 (Version 1)
Quarter: 2020Q3

REPORT INFORMATION
  Report Type: Spontaneous
  Country: US (occurrence: US)
  Receive Date: 20200727
  Receipt Date: 20200727
  Transmission Date: 20201103
  Serious: No
  Sender: FDA-Public Use
  Company Number: US-ABBVIE-19K-163-2917851-00

PATIENT
  Age: 69 Year
  Sex: Male

DRUGS (4)
  1. SYNTHROID [Suspect]
     Active Substance: LEVOTHYROXINE SODIUM
     Indication: PRODUCT USED FOR UNKNOWN INDICATION
     Route: 048
  2. THYROID POWDER [Suspect]
     Active Substance: THYROID, UNSPECIFIED
     Route: 048
     Dates: start: 20190725
  3. THYROID POWDER [Suspect]
     Active Substance: THYROID, UNSPECIFIED
     Indication: HYPOTHYROIDISM
     Route: 048
  4. THYROID POWDER [Suspect]
     Active Substance: THYROID, UNSPECIFIED
     Route: 065

REACTIONS (3)
  - Malaise [Recovered/Resolved]
  - Intentional product misuse [Unknown]
  - Therapeutic response decreased [Unknown]
